FAERS Safety Report 25631645 (Version 2)
Quarter: 2025Q4

REPORT INFORMATION
  Report Type: Spontaneous
  Country: US (occurrence: US)
  Receive Date: 20250801
  Receipt Date: 20251015
  Transmission Date: 20260118
  Serious: No
  Sender: SUNOVION
  Company Number: US-SMPA-2025SPA009638AA

PATIENT
  Age: 78 Year
  Sex: Male

DRUGS (8)
  1. ORGOVYX [Suspect]
     Active Substance: RELUGOLIX
     Indication: Prostate cancer
     Dosage: 360 MG
     Route: 048
     Dates: start: 20250617, end: 20250617
  2. ORGOVYX [Suspect]
     Active Substance: RELUGOLIX
     Dosage: 120 MG
     Route: 048
  3. ASPIRIN [Concomitant]
     Active Substance: ASPIRIN
  4. DOXYCYCLINE HYCLATE [Concomitant]
     Active Substance: DOXYCYCLINE HYCLATE
  5. ELIQUIS [Concomitant]
     Active Substance: APIXABAN
  6. PIMECROLIMUS [Concomitant]
     Active Substance: PIMECROLIMUS
     Route: 061
  7. ROSUVASTATIN [Concomitant]
     Active Substance: ROSUVASTATIN
  8. SYNTHROID [Concomitant]
     Active Substance: LEVOTHYROXINE SODIUM

REACTIONS (4)
  - Decreased appetite [Unknown]
  - General physical health deterioration [Unknown]
  - Dizziness [Unknown]
  - Weight increased [Unknown]
